FAERS Safety Report 11240558 (Version 1)
Quarter: 2015Q3

REPORT INFORMATION
  Report Type: Spontaneous
  Country: US (occurrence: None)
  Receive Date: 20150701
  Receipt Date: 20150701
  Transmission Date: 20151125
  Serious: Yes (Hospitalization)
  Sender: FDA-Public Use
  Company Number: None

PATIENT
  Age: 71 Year
  Sex: Male
  Weight: 77.2 kg

DRUGS (2)
  1. ASPIRIN. [Suspect]
     Active Substance: ASPIRIN
     Indication: PROPHYLAXIS
     Route: 048
     Dates: start: 20100224, end: 20150413
  2. IBUPROFEN. [Suspect]
     Active Substance: IBUPROFEN
     Indication: PAIN
     Route: 048
     Dates: start: 20100224, end: 20150413

REACTIONS (7)
  - Asthenia [None]
  - Gastric haemorrhage [None]
  - Nausea [None]
  - Varices oesophageal [None]
  - Mallory-Weiss syndrome [None]
  - Portal hypertensive gastropathy [None]
  - Peptic ulcer [None]

NARRATIVE: CASE EVENT DATE: 20150413
